FAERS Safety Report 21990270 (Version 1)
Quarter: 2023Q1

REPORT INFORMATION
  Report Type: Spontaneous
  Country: US (occurrence: US)
  Receive Date: 20230214
  Receipt Date: 20230214
  Transmission Date: 20230417
  Serious: Yes (Life-Threatening, Hospitalization, Other)
  Sender: FDA-Public Use
  Company Number: US-JUBILANT CADISTA PHARMACEUTICALS-2023JUB00065

PATIENT
  Age: 61 Year
  Sex: Female

DRUGS (4)
  1. PREDNISONE [Suspect]
     Active Substance: PREDNISONE
     Indication: Immunosuppressant drug therapy
     Dosage: EXTENDED HISTORY
  2. AZATHIOPRINE [Suspect]
     Active Substance: AZATHIOPRINE
     Indication: Immunosuppressant drug therapy
     Dosage: EXTENDED HISTORY
  3. USTEKINUMAB [Suspect]
     Active Substance: USTEKINUMAB
     Indication: Colitis ulcerative
     Dosage: 90MG EVERY 8 WEEKS
  4. USTEKINUMAB [Suspect]
     Active Substance: USTEKINUMAB
     Dosage: TOTAL, LOADING DOSE OF 260 MG

REACTIONS (2)
  - Acute myeloid leukaemia [Unknown]
  - Blast crisis in myelogenous leukaemia [Unknown]
